FAERS Safety Report 13933860 (Version 2)
Quarter: 2017Q3

REPORT INFORMATION
  Report Type: Spontaneous
  Country: AU (occurrence: AU)
  Receive Date: 20170904
  Receipt Date: 20170928
  Transmission Date: 20171127
  Serious: Yes (Life-Threatening, Hospitalization)
  Sender: FDA-Public Use
  Company Number: PHHY2017AU130208

PATIENT
  Age: 56 Year
  Sex: Female

DRUGS (2)
  1. MYCOPHENOLATE [Suspect]
     Active Substance: MYCOPHENOLIC ACID
     Indication: IMMUNOSUPPRESSANT DRUG THERAPY
  2. MYCOPHENOLATE [Suspect]
     Active Substance: MYCOPHENOLIC ACID
     Indication: RENAL TRANSPLANT
     Dosage: UNK
     Route: 065

REACTIONS (7)
  - Skin lesion [Recovering/Resolving]
  - Bacillary angiomatosis [Recovering/Resolving]
  - Lethargy [Unknown]
  - Skin mass [Unknown]
  - Hepatosplenomegaly [Unknown]
  - Cat scratch disease [Recovering/Resolving]
  - Pyrexia [Recovered/Resolved]
